FAERS Safety Report 9240691 (Version 1)
Quarter: 2013Q1

REPORT INFORMATION
  Report Type: Spontaneous
  Country: US (occurrence: None)
  Receive Date: 20121120
  Receipt Date: 20121120
  Transmission Date: 20140127
  Serious: No
  Sender: FDA-Public Use
  Company Number: 1000038050

PATIENT
  Age: 55 Year
  Sex: Male

DRUGS (3)
  1. VIIBRYD [Suspect]
     Indication: DEPRESSION
     Dosage: 10 MG (10 MG, 1 IN 1 D), ORAL
     Route: 048
     Dates: start: 20120806, end: 20120812
  2. BYSTOLIC (NEBIVOLOL HYDROCHLORIDE) (NEBIVOLOL HYDROCHLORIDE) [Concomitant]
  3. LISINOPRIL (LISINOPRIL) (LISINOPRIL) [Concomitant]

REACTIONS (4)
  - Insomnia [None]
  - Dizziness [None]
  - Nausea [None]
  - Diarrhoea [None]
